FAERS Safety Report 7405778-0 (Version None)
Quarter: 2011Q2

REPORT INFORMATION
  Report Type: 
  Country: None (occurrence: None)
  Receive Date: 20110411
  Receipt Date: 20110406
  Transmission Date: 20111010
  Serious: Yes (Other)
  Sender: FDA-Public Use
  Company Number: US-PFIZER INC-2011076836

PATIENT
  Sex: Female
  Weight: 63.5 kg

DRUGS (2)
  1. CHANTIX [Suspect]
     Indication: SMOKING CESSATION THERAPY
     Dosage: UNK
     Route: 048
     Dates: start: 20091201, end: 20100101
  2. CHANTIX [Suspect]
     Dosage: 0.5 MG, UNK
     Dates: start: 20110226, end: 20110406

REACTIONS (5)
  - AGGRESSION [None]
  - ANGER [None]
  - ANXIETY [None]
  - HOSTILITY [None]
  - AGITATION [None]
